FAERS Safety Report 10484243 (Version 14)
Quarter: 2017Q2

REPORT INFORMATION
  Report Type: Report from Study
  Country: CA (occurrence: CA)
  Receive Date: 20140930
  Receipt Date: 20170405
  Transmission Date: 20170829
  Serious: Yes (Hospitalization, Other)
  Sender: FDA-Public Use
  Company Number: CA-INCYTE CORPORATION-2014IN001884

PATIENT
  Sex: Female

DRUGS (13)
  1. WARFARIN [Concomitant]
     Active Substance: WARFARIN
     Indication: INTERNATIONAL NORMALISED RATIO DECREASED
     Dosage: 5 MG - 6 MG, (5 MG QD ALTERNATING WITH 6 MG EVERY THREE DAYS)
     Route: 065
  2. JAKAVI [Suspect]
     Active Substance: RUXOLITINIB
     Dosage: 15 MG, (10 MG ONCE IN MORNING AND 5 MG ONCE IN EVENING)
     Route: 048
     Dates: start: 20140818
  3. COUMADINE [Concomitant]
     Active Substance: WARFARIN SODIUM
     Indication: PRODUCT USED FOR UNKNOWN INDICATION
     Dosage: 6 MG, QD
  4. COUMADINE [Concomitant]
     Active Substance: WARFARIN SODIUM
     Dosage: 6 MG, QW4 (4 TIMES A WEEK)
     Route: 065
  5. WARFARIN [Concomitant]
     Active Substance: WARFARIN
     Indication: INTERNATIONAL NORMALISED RATIO FLUCTUATION
  6. JAKAVI [Suspect]
     Active Substance: RUXOLITINIB
     Dosage: 10 MG, BID
     Route: 048
  7. JAKAVI [Suspect]
     Active Substance: RUXOLITINIB
     Indication: MYELOFIBROSIS
     Dosage: 20 MG, TWICE A DAILY (BID)
     Route: 048
     Dates: start: 20140527
  8. JAKAVI [Suspect]
     Active Substance: RUXOLITINIB
     Dosage: 10 MG, BID
     Route: 048
     Dates: start: 20140723
  9. BISOPROLOL [Concomitant]
     Active Substance: BISOPROLOL
     Indication: PRODUCT USED FOR UNKNOWN INDICATION
     Dosage: UNK
  10. TYLENOL [Concomitant]
     Active Substance: ACETAMINOPHEN
     Indication: ARTHRITIS
     Route: 065
  11. COUMADINE [Concomitant]
     Active Substance: WARFARIN SODIUM
     Dosage: 5 MG, QW3 (THREE TIMES PER WEEK)
     Route: 065
  12. TYLENOL [Concomitant]
     Active Substance: ACETAMINOPHEN
     Indication: GROIN PAIN
  13. WARFARIN [Concomitant]
     Active Substance: WARFARIN
     Indication: THROMBOSIS
     Dosage: 5 MG, QD
     Route: 065

REACTIONS (24)
  - International normalised ratio decreased [Unknown]
  - Fatigue [Unknown]
  - Muscle strain [Unknown]
  - Weight increased [Unknown]
  - Pelvic fracture [Unknown]
  - Haematoma [Unknown]
  - Blood iron decreased [Recovering/Resolving]
  - Flatulence [Unknown]
  - Flatulence [Recovered/Resolved]
  - Limb injury [Unknown]
  - White blood cell count decreased [Unknown]
  - Musculoskeletal stiffness [Unknown]
  - Platelet count decreased [Unknown]
  - Abdominal adhesions [Unknown]
  - Pain in extremity [Unknown]
  - Gastrointestinal disorder [Recovering/Resolving]
  - International normalised ratio fluctuation [Unknown]
  - Fall [Unknown]
  - Haemoglobin decreased [Recovering/Resolving]
  - Asthenia [Unknown]
  - Groin pain [Unknown]
  - Contusion [Recovering/Resolving]
  - Pneumonia [Recovered/Resolved]
  - Coagulopathy [Unknown]
